FAERS Safety Report 7405330-7 (Version None)
Quarter: 2011Q2

REPORT INFORMATION
  Report Type: 
  Country: None (occurrence: None)
  Receive Date: 20110411
  Receipt Date: 20110401
  Transmission Date: 20111010
  Serious: Yes (Other)
  Sender: FDA-Public Use
  Company Number: PHHY2011BR27620

PATIENT
  Age: 80 Year
  Sex: Female

DRUGS (1)
  1. HYDERGINE [Suspect]
     Dosage: 4.5 MG, UNK

REACTIONS (1)
  - DRUG DEPENDENCE [None]
